FAERS Safety Report 23956844 (Version 1)
Quarter: 2024Q2

REPORT INFORMATION
  Report Type: Spontaneous
  Country: US (occurrence: US)
  Receive Date: 20240610
  Receipt Date: 20240610
  Transmission Date: 20240715
  Serious: No
  Sender: FDA-Public Use
  Company Number: US-VANDA PHARMACEUTICALS, INC-2024ILOUS001942

PATIENT
  Sex: Female

DRUGS (2)
  1. FANAPT [Suspect]
     Active Substance: ILOPERIDONE
     Indication: Schizophrenia
     Dosage: UNK
     Route: 065
  2. FANAPT [Suspect]
     Active Substance: ILOPERIDONE
     Dosage: UNK
     Route: 065
     Dates: start: 2023

REACTIONS (2)
  - Hallucination [Unknown]
  - Drug ineffective [Unknown]
